FAERS Safety Report 5961010-6 (Version None)
Quarter: 2008Q4

REPORT INFORMATION
  Report Type: 
  Country: None (occurrence: None)
  Receive Date: 20081121
  Receipt Date: 20080206
  Transmission Date: 20090506
  Serious: No
  Sender: FDA-Public Use
  Company Number: A0707811A

PATIENT
  Age: 50 Year
  Sex: Male

DRUGS (8)
  1. LANOXIN [Suspect]
     Route: 048
     Dates: start: 20080201, end: 20080201
  2. DIGOXIN [Concomitant]
  3. XENICAL [Concomitant]
  4. PRAVACHOL [Concomitant]
  5. LEXAPRO [Concomitant]
  6. SPIRONOLACTONE [Concomitant]
  7. LASIX [Concomitant]
  8. DILTIAZEM HCL [Concomitant]

REACTIONS (2)
  - DIZZINESS [None]
  - DRUG DISPENSING ERROR [None]
